FAERS Safety Report 6876284-7 (Version None)
Quarter: 2010Q3

REPORT INFORMATION
  Report Type: 
  Country: None (occurrence: None)
  Receive Date: 20100727
  Receipt Date: 20100719
  Transmission Date: 20110219
  Serious: Yes (Hospitalization)
  Sender: FDA-Public Use
  Company Number: B0665967A

PATIENT
  Sex: Female

DRUGS (3)
  1. AUGMENTIN '125' [Suspect]
     Indication: SINUSITIS
     Route: 048
     Dates: start: 20100318, end: 20100321
  2. SALAZOPYRINE [Suspect]
     Indication: SPONDYLOARTHROPATHY
     Route: 048
     Dates: start: 20100308, end: 20100321
  3. VOLTAREN [Suspect]
     Indication: PRODUCT USED FOR UNKNOWN INDICATION
     Dosage: 1UNIT AT NIGHT
     Route: 048
     Dates: end: 20100321

REACTIONS (11)
  - DERMATITIS BULLOUS [None]
  - DRUG ERUPTION [None]
  - KERATITIS [None]
  - LYMPHOPENIA [None]
  - MUCOCUTANEOUS RASH [None]
  - PAIN [None]
  - PRURITUS [None]
  - PYREXIA [None]
  - RASH MACULO-PAPULAR [None]
  - STEVENS-JOHNSON SYNDROME [None]
  - VISUAL ACUITY REDUCED [None]
